FAERS Safety Report 6366480-X (Version None)
Quarter: 2009Q3

REPORT INFORMATION
  Report Type: 
  Country: None (occurrence: None)
  Receive Date: 20090921
  Receipt Date: 20090911
  Transmission Date: 20100115
  Serious: Yes (Other)
  Sender: FDA-Public Use
  Company Number: AU-SOLVAY-00309005360

PATIENT
  Age: 48 Year
  Sex: Male

DRUGS (3)
  1. TESTOSTERONE [Suspect]
     Indication: BLOOD TESTOSTERONE DECREASED
     Dosage: DAILY DOSE: 5 GRAM(S), FULL SACHET
     Route: 062
  2. TESTOSTERONE [Suspect]
     Dosage: DAILY DOSE: 2.5 GRAM(S)
     Route: 062
     Dates: end: 20090101
  3. REANDRON [Suspect]
     Indication: BLOOD TESTOSTERONE DECREASED
     Dosage: DAILY DOSE: 500 MILLIGRAM(S)
     Route: 030
     Dates: start: 20090804, end: 20090804

REACTIONS (8)
  - AGGRESSION [None]
  - DEMENTIA [None]
  - GYNAECOMASTIA [None]
  - HEADACHE [None]
  - HOSTILITY [None]
  - INSOMNIA [None]
  - MEMORY IMPAIRMENT [None]
  - PALPITATIONS [None]
